FAERS Safety Report 13491266 (Version 2)
Quarter: 2017Q2

REPORT INFORMATION
  Report Type: Spontaneous
  Country: JP (occurrence: JP)
  Receive Date: 20170427
  Receipt Date: 20170607
  Transmission Date: 20170830
  Serious: Yes (Death, Hospitalization, Other)
  Sender: FDA-Public Use
  Company Number: JP-TEVA-2017-JP-001254J

PATIENT
  Age: 44 Year
  Sex: Male
  Weight: 96 kg

DRUGS (8)
  1. TACROLIMUS HYDRATE [Concomitant]
     Active Substance: TACROLIMUS
     Dosage: 7 MILLIGRAM DAILY;
     Route: 065
  2. TACROLIMUS HYDRATE [Concomitant]
     Active Substance: TACROLIMUS
     Indication: DUST INHALATION PNEUMOPATHY
     Dosage: 2 MILLIGRAM DAILY;
     Route: 065
  3. PREDNISOLONE TABLETS 5MG. [Interacting]
     Active Substance: PREDNISOLONE
     Dosage: 100 MILLIGRAM DAILY;
     Route: 048
  4. ETHAMBUTOL HYDROCHLORIDE. [Concomitant]
     Active Substance: ETHAMBUTOL HYDROCHLORIDE
     Indication: ATYPICAL MYCOBACTERIAL INFECTION
     Dosage: 750 MILLIGRAM DAILY;
     Route: 065
  5. CLARITHROMYCIN. [Concomitant]
     Active Substance: CLARITHROMYCIN
     Indication: ATYPICAL MYCOBACTERIAL INFECTION
     Dosage: 800 MILLIGRAM DAILY;
     Route: 065
  6. PREDNISOLONE TABLETS 5MG. [Suspect]
     Active Substance: PREDNISOLONE
     Indication: DUST INHALATION PNEUMOPATHY
     Dosage: 40 MILLIGRAM DAILY;
     Route: 048
  7. PREDNISOLONE TABLETS 5MG. [Interacting]
     Active Substance: PREDNISOLONE
     Dosage: 50 MILLIGRAM DAILY;
     Route: 048
  8. RIFAMPICIN [Suspect]
     Active Substance: RIFAMPIN
     Indication: ATYPICAL MYCOBACTERIAL INFECTION
     Dosage: 450 MILLIGRAM DAILY;
     Route: 065

REACTIONS (5)
  - Atypical mycobacterial infection [Recovering/Resolving]
  - Diabetes mellitus [Unknown]
  - Urinary tract infection [Unknown]
  - Septic shock [Fatal]
  - Drug interaction [Recovered/Resolved]
